FAERS Safety Report 5707896-1 (Version None)
Quarter: 2008Q2

REPORT INFORMATION
  Report Type: 
  Country: None (occurrence: None)
  Receive Date: 20080417
  Receipt Date: 20080317
  Transmission Date: 20081010
  Serious: No
  Sender: FDA-Public Use
  Company Number: US-BAYER-US-2007-036522

PATIENT
  Age: 55 Year
  Sex: Male
  Weight: 134 kg

DRUGS (11)
  1. CAMPATH [Suspect]
     Indication: CHRONIC LYMPHOCYTIC LEUKAEMIA
     Route: 058
     Dates: start: 20070926
  2. BENADRYL ^WARNER-LAMBERT^ /USA/ [Concomitant]
     Indication: PREMEDICATION
     Dates: start: 20070926
  3. TYLENOL (CAPLET) [Concomitant]
     Indication: PREMEDICATION
     Dates: start: 20070926
  4. FAMVIR /NET/ [Concomitant]
     Indication: ANTI-INFECTIVE THERAPY
     Dosage: UNIT DOSE: 200 MG
  5. BACTRIM DS [Concomitant]
     Indication: ANTI-INFECTIVE THERAPY
  6. METFORMIN HCL [Concomitant]
     Dosage: UNIT DOSE: 50 MG
  7. PROTONIX [Concomitant]
     Dosage: UNIT DOSE: 40 MG
  8. ALLOPURINOL [Concomitant]
  9. NASACORT [Concomitant]
  10. ALBUTEROL [Concomitant]
  11. SINGULAIR [Concomitant]
     Dosage: UNIT DOSE: 10 MG

REACTIONS (3)
  - INJECTION SITE ERYTHEMA [None]
  - INJECTION SITE PRURITUS [None]
  - INJECTION SITE SWELLING [None]
